FAERS Safety Report 16689708 (Version 2)
Quarter: 2020Q1

REPORT INFORMATION
  Report Type: Spontaneous
  Country: US (occurrence: US)
  Receive Date: 20190809
  Receipt Date: 20200129
  Transmission Date: 20200409
  Serious: No
  Sender: FDA-Public Use
  Company Number: US-AMGEN INC.-USASP2019126283

PATIENT
  Age: 44 Year
  Sex: Female

DRUGS (2)
  1. ERENUMAB [Suspect]
     Active Substance: ERENUMAB
     Indication: MIGRAINE PROPHYLAXIS
     Dosage: 70 MILLIGRAM, QMO
     Route: 058
  2. RIMEGEPANT. [Concomitant]
     Active Substance: RIMEGEPANT
     Indication: MIGRAINE
     Dosage: 75 MILLIGRAM, AS NECESSARY (UP TO ONCE DAILY)
     Route: 048

REACTIONS (2)
  - Therapeutic product effect incomplete [Unknown]
  - Migraine [Unknown]
